FAERS Safety Report 8828936 (Version 3)
Quarter: 2012Q4

REPORT INFORMATION
  Report Type: 
  Country: US (occurrence: US)
  Receive Date: 20121009
  Receipt Date: 20121026
  Transmission Date: 20130627
  Serious: Yes (Hospitalization, Other)
  Sender: FDA-Public Use
  Company Number: US-009507513-1209USA008720

PATIENT
  Age: 62 None
  Sex: Female

DRUGS (3)
  1. PEGINTRON [Suspect]
     Indication: HEPATITIS C
     Dosage: UNK
     Route: 058
     Dates: start: 20120831, end: 20121008
  2. REBETOL [Suspect]
     Indication: HEPATITIS C
     Dosage: UNK
     Route: 048
     Dates: start: 20120831, end: 20121008
  3. TELAVIC [Concomitant]
     Indication: HEPATITIS C
     Dosage: UNK
     Dates: start: 20120831, end: 20121008

REACTIONS (8)
  - Transfusion [Unknown]
  - Rectal fissure [Not Recovered/Not Resolved]
  - Rash pruritic [Not Recovered/Not Resolved]
  - Rash [Not Recovered/Not Resolved]
  - Anaemia [Unknown]
  - Memory impairment [Unknown]
  - Rash [Not Recovered/Not Resolved]
  - Fatigue [Unknown]
